FAERS Safety Report 19080590 (Version 1)
Quarter: 2021Q1

REPORT INFORMATION
  Report Type: Spontaneous
  Country: US (occurrence: US)
  Receive Date: 20210331
  Receipt Date: 20210331
  Transmission Date: 20210420
  Serious: Yes (Other)
  Sender: FDA-Public Use
  Company Number: US-MYOVANT SCIENCES IRELAND LIMITED-2021MYSCI0300060

PATIENT
  Age: 49 Year
  Sex: Male

DRUGS (2)
  1. KEPPRA [Concomitant]
     Active Substance: LEVETIRACETAM
     Indication: PRODUCT USED FOR UNKNOWN INDICATION
     Dosage: UNKNOWN
  2. ORGOVYX [Suspect]
     Active Substance: RELUGOLIX
     Indication: PROSTATE CANCER
     Dosage: 120 MILLIGRAM, QD
     Route: 048
     Dates: start: 20210309

REACTIONS (4)
  - Seizure [Unknown]
  - Arthralgia [Unknown]
  - Myalgia [Unknown]
  - Erectile dysfunction [Unknown]
